FAERS Safety Report 5019311-4 (Version None)
Quarter: 2006Q2

REPORT INFORMATION
  Report Type: 
  Country: None (occurrence: None)
  Receive Date: 20060606
  Receipt Date: 20060526
  Transmission Date: 20061013
  Serious: Yes (Other)
  Sender: FDA-Public Use
  Company Number: US-JNJFOC-20060402962

PATIENT
  Sex: Female
  Weight: 97.07 kg

DRUGS (9)
  1. REMICADE [Suspect]
     Route: 042
  2. REMICADE [Suspect]
     Indication: RHEUMATOID ARTHRITIS
     Dosage: 4 VIALS
     Route: 042
  3. CARDIA XT [Concomitant]
  4. DIOVAN [Concomitant]
  5. NEXIUM [Concomitant]
  6. TREXALL [Concomitant]
  7. MOBIC [Concomitant]
  8. PREDNISONE [Concomitant]
     Dosage: DOSE: 2 TO 2.5 MG
  9. FOLIC ACID [Concomitant]

REACTIONS (9)
  - COLLAPSE OF LUNG [None]
  - ESCHERICHIA URINARY TRACT INFECTION [None]
  - LUNG INFILTRATION [None]
  - LUPUS-LIKE SYNDROME [None]
  - PLEURAL EFFUSION [None]
  - PLEURITIC PAIN [None]
  - RHEUMATOID ARTHRITIS [None]
  - SWELLING FACE [None]
  - WHEEZING [None]
